FAERS Safety Report 13775478 (Version 1)
Quarter: 2017Q3

REPORT INFORMATION
  Report Type: Spontaneous
  Country: US (occurrence: US)
  Receive Date: 20170720
  Receipt Date: 20170720
  Transmission Date: 20171127
  Serious: No
  Sender: FDA-Public Use
  Company Number: US-ASTRAZENECA-2017SE73967

PATIENT
  Sex: Female

DRUGS (3)
  1. EFFEXOR [Suspect]
     Active Substance: VENLAFAXINE HYDROCHLORIDE
     Dosage: EVERY OTHER DAY FOR 2 WEEKS
  2. HCTZ [Concomitant]
     Active Substance: HYDROCHLOROTHIAZIDE
  3. ANASTROZOLE. [Suspect]
     Active Substance: ANASTROZOLE
     Indication: BREAST CANCER FEMALE
     Route: 048

REACTIONS (21)
  - Influenza like illness [Unknown]
  - Insomnia [Unknown]
  - Decreased appetite [Unknown]
  - Diarrhoea [Unknown]
  - Tremor [Unknown]
  - Nightmare [Unknown]
  - Nausea [Unknown]
  - Somnolence [Unknown]
  - Vomiting [Unknown]
  - Fatigue [Unknown]
  - Bone pain [Unknown]
  - Hyperhidrosis [Unknown]
  - Nervousness [Unknown]
  - Agitation [Unknown]
  - Anxiety [Unknown]
  - Confusional state [Unknown]
  - Dry mouth [Unknown]
  - Vertigo [Unknown]
  - Headache [Unknown]
  - Sensory disturbance [Unknown]
  - Dizziness [Unknown]
